FAERS Safety Report 7619296-8 (Version None)
Quarter: 2011Q3

REPORT INFORMATION
  Report Type: 
  Country: None (occurrence: None)
  Receive Date: 20110718
  Receipt Date: 20110711
  Transmission Date: 20111222
  Serious: No
  Sender: FDA-Public Use
  Company Number: US-B.I. PHARMACEUTICALS,INC./RIDGEFIELD-2011-BP-14756BP

PATIENT
  Age: 73 Year
  Sex: Female

DRUGS (6)
  1. PROPRANOLOL [Concomitant]
     Indication: HYPERTENSION
     Dosage: 60 MG
     Route: 048
     Dates: start: 20060101
  2. ZOCOR [Concomitant]
     Indication: BLOOD CHOLESTEROL
     Dosage: 40 MG
     Route: 048
     Dates: start: 20080101
  3. PRADAXA [Suspect]
     Indication: ATRIAL FIBRILLATION
     Dosage: 300 MG
     Route: 048
     Dates: start: 20110527
  4. VALIUM [Concomitant]
     Indication: SLEEP DISORDER
     Dosage: 5 MG
     Route: 048
     Dates: start: 20010101
  5. MECLIZINE [Concomitant]
     Indication: VERTIGO
     Dosage: 25 MG
     Route: 048
     Dates: start: 20080101
  6. SYNTHROID [Concomitant]
     Indication: THYROID DISORDER
     Dosage: 0.05 MG
     Route: 048
     Dates: start: 20010101

REACTIONS (5)
  - DIZZINESS [None]
  - MEMORY IMPAIRMENT [None]
  - HEADACHE [None]
  - VERTIGO [None]
  - MIGRAINE WITH AURA [None]
